FAERS Safety Report 23134360 (Version 1)
Quarter: 2023Q4

REPORT INFORMATION
  Report Type: Spontaneous
  Country: US (occurrence: US)
  Receive Date: 20231101
  Receipt Date: 20231101
  Transmission Date: 20240109
  Serious: No
  Sender: FDA-Public Use
  Company Number: US-NXDC-2023GLE00055

PATIENT

DRUGS (1)
  1. GLEOLAN [Suspect]
     Active Substance: AMINOLEVULINIC ACID HYDROCHLORIDE
     Indication: Product used for unknown indication
     Dates: start: 2022, end: 2022

REACTIONS (1)
  - Sunburn [Unknown]
